FAERS Safety Report 4635192-2 (Version None)
Quarter: 2005Q2

REPORT INFORMATION
  Report Type: 
  Country: None (occurrence: None)
  Receive Date: 20050414
  Receipt Date: 20050329
  Transmission Date: 20051028
  Serious: Yes (Hospitalization)
  Sender: FDA-Public Use
  Company Number: FR-BOEHRINGER INGELHEIM PHARMACEUTICALS, INC.-2005-FF-00224FF

PATIENT
  Age: 85 Year
  Sex: Male
  Weight: 70 kg

DRUGS (12)
  1. JOSIR [Suspect]
     Indication: PROSTATIC ADENOMA
     Route: 048
     Dates: start: 20040715
  2. ESIDRIX [Concomitant]
     Route: 065
  3. SECTRAL [Concomitant]
     Indication: HYPERTENSION
     Route: 065
  4. TRIATEC [Concomitant]
     Indication: HYPERTENSION
     Route: 065
  5. AMLOR [Concomitant]
     Indication: HYPERTENSION
     Route: 065
  6. HYPERIUM [Concomitant]
     Indication: HYPERTENSION
     Route: 065
  7. PLAVIX [Concomitant]
     Route: 065
  8. BETASERC [Concomitant]
     Route: 065
  9. ACTONEL [Concomitant]
     Route: 065
  10. CORTANCYL [Concomitant]
     Indication: POLYARTHRITIS
     Route: 065
  11. AVODART [Concomitant]
     Route: 065
  12. MIXTARD HUMAN 70/30 [Concomitant]
     Indication: INSULIN-REQUIRING TYPE II DIABETES MELLITUS
     Route: 065

REACTIONS (9)
  - BLOOD CREATININE INCREASED [None]
  - BLOOD PRESSURE FLUCTUATION [None]
  - ECCHYMOSIS [None]
  - FALL [None]
  - HEAD INJURY [None]
  - HEART RATE DECREASED [None]
  - LOSS OF CONSCIOUSNESS [None]
  - MALAISE [None]
  - ORTHOSTATIC HYPOTENSION [None]
